FAERS Safety Report 22151491 (Version 2)
Quarter: 2023Q2

REPORT INFORMATION
  Report Type: Report from Study
  Country: US (occurrence: None)
  Receive Date: 20230329
  Receipt Date: 20230417
  Transmission Date: 20230722
  Serious: Yes (Death, Other)
  Sender: FDA-Public Use
  Company Number: 2023A072349

PATIENT
  Age: 79 Year
  Sex: Male
  Weight: 81.6 kg

DRUGS (1)
  1. ONGLYZA [Suspect]
     Active Substance: SAXAGLIPTIN HYDROCHLORIDE
     Indication: Diabetes mellitus
     Dosage: 2.5MG UNKNOWN
     Route: 048

REACTIONS (1)
  - Hepatic cancer [Fatal]
